FAERS Safety Report 5049573-9 (Version None)
Quarter: 2006Q3

REPORT INFORMATION
  Report Type: 
  Country: None (occurrence: None)
  Receive Date: 20060712
  Receipt Date: 20060706
  Transmission Date: 20061208
  Serious: Yes (Hospitalization)
  Sender: FDA-Public Use
  Company Number: CH-BRISTOL-MYERS SQUIBB COMPANY-13434634

PATIENT
  Age: 8 Decade
  Sex: Female

DRUGS (13)
  1. COAPROVEL TABS 150MG/12.5MG [Interacting]
     Indication: HYPERTENSIVE HEART DISEASE
     Route: 048
     Dates: start: 20060316, end: 20060331
  2. COAPROVEL TABS 150MG/12.5MG [Interacting]
     Indication: CARDIAC FAILURE CONGESTIVE
     Route: 048
     Dates: start: 20060316, end: 20060331
  3. FOSITEN [Interacting]
     Indication: HYPERTENSIVE HEART DISEASE
     Route: 048
     Dates: start: 20060316, end: 20060331
  4. FOSITEN [Interacting]
     Indication: CARDIAC FAILURE CONGESTIVE
     Route: 048
     Dates: start: 20060316, end: 20060331
  5. ALDOZONE [Interacting]
     Indication: HYPERTENSIVE HEART DISEASE
     Dosage: DOSAGE: 50 MG / 5 MG DAILY
     Route: 048
     Dates: start: 20060316, end: 20060321
  6. ALDOZONE [Interacting]
     Indication: CARDIAC FAILURE CONGESTIVE
     Dosage: DOSAGE: 50 MG / 5 MG DAILY
     Route: 048
     Dates: start: 20060316, end: 20060321
  7. MS CONTIN [Suspect]
     Indication: ARTHRALGIA
     Route: 048
     Dates: start: 20060330, end: 20060331
  8. NORVASC [Interacting]
     Indication: HYPERTENSIVE HEART DISEASE
     Route: 048
     Dates: start: 20060316, end: 20060331
  9. NORVASC [Interacting]
     Indication: CARDIAC FAILURE CONGESTIVE
     Route: 048
     Dates: start: 20060316, end: 20060331
  10. TORSEMIDE [Interacting]
     Indication: HYPERTENSIVE HEART DISEASE
     Route: 048
     Dates: start: 20060321, end: 20060330
  11. TORSEMIDE [Interacting]
     Indication: CARDIAC FAILURE CONGESTIVE
     Route: 048
     Dates: start: 20060321, end: 20060330
  12. VIBRAMYCIN [Concomitant]
     Indication: PNEUMONIA BACTERIAL
     Route: 048
     Dates: start: 20060316, end: 20060321
  13. ZINNAT [Concomitant]
     Indication: PNEUMONIA BACTERIAL
     Route: 048
     Dates: start: 20060321

REACTIONS (9)
  - AGITATION [None]
  - ANURIA [None]
  - CONFUSIONAL STATE [None]
  - DEPRESSED LEVEL OF CONSCIOUSNESS [None]
  - DRUG INTERACTION [None]
  - DRUG TOXICITY [None]
  - HALLUCINATION, VISUAL [None]
  - MYOCLONUS [None]
  - RENAL FAILURE ACUTE [None]
